FAERS Safety Report 6374059-9 (Version None)
Quarter: 2009Q3

REPORT INFORMATION
  Report Type: 
  Country: None (occurrence: None)
  Receive Date: 20090924
  Receipt Date: 20090706
  Transmission Date: 20100115
  Serious: No
  Sender: FDA-Public Use
  Company Number: US-ASTRAZENECA-2009UW18740

PATIENT
  Age: 68 Year
  Sex: Female
  Weight: 81.6 kg

DRUGS (6)
  1. SEROQUEL [Suspect]
     Indication: DEPRESSION
     Route: 048
  2. PRAVASTATIN [Concomitant]
  3. AMARIL [Concomitant]
  4. KENDURAL [Concomitant]
  5. ERGOCALCIFER [Concomitant]
  6. MIRTAZAPINE [Concomitant]
     Indication: DEPRESSION

REACTIONS (3)
  - HUNGER [None]
  - PSYCHOMOTOR HYPERACTIVITY [None]
  - WEIGHT INCREASED [None]
